FAERS Safety Report 5965825-X (Version None)
Quarter: 2008Q4

REPORT INFORMATION
  Report Type: 
  Country: None (occurrence: None)
  Receive Date: 20081125
  Receipt Date: 20081114
  Transmission Date: 20090506
  Serious: Yes (Other)
  Sender: FDA-Public Use
  Company Number: JP-ROCHE-598603

PATIENT
  Sex: Female

DRUGS (1)
  1. KYTRIL [Suspect]
     Indication: PROPHYLAXIS OF NAUSEA AND VOMITING
     Dosage: ROUTE: INTRAVENOUS (NOT OTHERWISE SPECIFIED, DRUG REPORTED AS KYTRIL INJECTION.
     Route: 042
     Dates: start: 20080905

REACTIONS (2)
  - ALTERED STATE OF CONSCIOUSNESS [None]
  - BLOOD PRESSURE DECREASED [None]
